FAERS Safety Report 10258381 (Version 1)
Quarter: 2014Q2

REPORT INFORMATION
  Report Type: Spontaneous
  Country: ES (occurrence: ES)
  Receive Date: 20140625
  Receipt Date: 20140625
  Transmission Date: 20141212
  Serious: Yes (Other)
  Sender: FDA-Public Use
  Company Number: ES-SA-2014SA083937

PATIENT
  Age: 27 Year
  Sex: Male
  Weight: 72 kg

DRUGS (3)
  1. STILNOX [Suspect]
     Indication: INSOMNIA
     Dosage: 1COMPRIMIDO
     Route: 048
     Dates: start: 2014, end: 2014
  2. STILNOX [Suspect]
     Indication: INSOMNIA
     Route: 065
  3. EUTIROX [Concomitant]
     Dosage: 125  1 ALVEZ AL DIA
     Route: 065

REACTIONS (3)
  - Dysarthria [Recovered/Resolved]
  - Amnesia [Recovered/Resolved]
  - Abnormal behaviour [Recovered/Resolved]
